FAERS Safety Report 12462365 (Version 2)
Quarter: 2016Q3

REPORT INFORMATION
  Report Type: Spontaneous
  Country: US (occurrence: US)
  Receive Date: 20160614
  Receipt Date: 20160716
  Transmission Date: 20161109
  Serious: Yes (Death, Other)
  Sender: FDA-Public Use
  Company Number: US-JNJFOC-20160603418

PATIENT
  Age: 68 Year
  Sex: Male
  Weight: 90 kg

DRUGS (3)
  1. TYLENOL [Suspect]
     Active Substance: ACETAMINOPHEN
     Route: 048
  2. TRAMADOL. [Suspect]
     Active Substance: TRAMADOL
     Indication: HEADACHE
     Route: 065
     Dates: start: 20160408
  3. TYLENOL [Suspect]
     Active Substance: ACETAMINOPHEN
     Indication: HEADACHE
     Route: 048
     Dates: start: 20160408

REACTIONS (8)
  - Subdural haematoma [Unknown]
  - Unresponsive to stimuli [Unknown]
  - Emotional distress [Unknown]
  - Death [Fatal]
  - Urinary incontinence [Unknown]
  - Thrombocytopenia [Unknown]
  - Snoring [Unknown]
  - Pupil fixed [Unknown]

NARRATIVE: CASE EVENT DATE: 201604
